FAERS Safety Report 14342059 (Version 3)
Quarter: 2018Q2

REPORT INFORMATION
  Report Type: Spontaneous
  Country: FR (occurrence: FR)
  Receive Date: 20180102
  Receipt Date: 20180430
  Transmission Date: 20180711
  Serious: Yes (Hospitalization, Other)
  Sender: FDA-Public Use
  Company Number: FR-MYLANLABS-2017M1083227

PATIENT
  Age: 60 Year
  Sex: Male
  Weight: 63 kg

DRUGS (22)
  1. OXALIPLATIN. [Suspect]
     Active Substance: OXALIPLATIN
     Dosage: 160 MG, CYCLE, FOURTH CYCLE, FOURTH CYCLE EIGHT CYCLE 120 MG
     Route: 042
     Dates: start: 20170404, end: 20170502
  2. FLUOROURACIL. [Suspect]
     Active Substance: FLUOROURACIL
     Dosage: 760 MG, CYCLE, FOURTH CYCLE
     Route: 040
  3. AVASTIN [Suspect]
     Active Substance: BEVACIZUMAB
     Indication: COLORECTAL CANCER METASTATIC
     Dosage: 360 MG, CYCLE, 13 TH CYCLE
     Route: 042
  4. IRINOTECAN [Suspect]
     Active Substance: IRINOTECAN
     Dosage: 320 MG, CYCLE, 13 TH CYCLE
     Route: 042
  5. FLUOROURACIL. [Suspect]
     Active Substance: FLUOROURACIL
     Dosage: 770 MG, CYCLE, FIRST CYCLE
     Route: 040
     Dates: start: 20170116
  6. FLUOROURACIL. [Suspect]
     Active Substance: FLUOROURACIL
     Dosage: 4600 MG, CYCLE, FIRST CYCLE
     Route: 041
  7. ELVORINE [Suspect]
     Active Substance: LEUCOVORIN CALCIUM
     Dosage: 366 MG, CYCLE, NINETH CYCLE
     Route: 042
  8. ELVORINE [Suspect]
     Active Substance: LEUCOVORIN CALCIUM
     Dosage: 366 MG, CYCLE, 13 TH CYCLE
     Route: 042
  9. FLUOROURACIL. [Suspect]
     Active Substance: FLUOROURACIL
     Dosage: 4400 MG, CYCLE, NINETH CYCLE
     Route: 041
  10. FLUOROURACIL. [Suspect]
     Active Substance: FLUOROURACIL
     Dosage: 740 MG, CYCLE, NINETH CYCLE
     Route: 040
  11. ELVORINE [Suspect]
     Active Substance: LEUCOVORIN CALCIUM
     Indication: COLORECTAL CANCER METASTATIC
     Dosage: UNK UNK, CYCLE, FIRST CYCLE
     Route: 042
  12. IRINOTECAN [Suspect]
     Active Substance: IRINOTECAN
     Indication: COLORECTAL CANCER METASTATIC
     Dosage: 290 MG, CYCLE, FIRST CYCLE
     Route: 042
     Dates: start: 20170116
  13. IRINOTECAN [Suspect]
     Active Substance: IRINOTECAN
     Dosage: 280 MG, CYCLE, FOURTH CYCLE
     Route: 042
  14. OXALIPLATIN. [Suspect]
     Active Substance: OXALIPLATIN
     Indication: COLORECTAL CANCER METASTATIC
     Dosage: 160 MG, CYCLE, FIRST CYCLE
     Route: 042
     Dates: start: 20170116
  15. FLUOROURACIL. [Suspect]
     Active Substance: FLUOROURACIL
     Dosage: 740 MG, CYCLE, 13 TH CYCLE
     Route: 040
  16. FLUOROURACIL. [Suspect]
     Active Substance: FLUOROURACIL
     Dosage: 4400 MG, CYCLE, 13 TH CYCLE
     Route: 041
  17. AVASTIN [Suspect]
     Active Substance: BEVACIZUMAB
     Dosage: 380 MG, CYCLE, FOURTH CYCLE
     Route: 042
  18. AVASTIN [Suspect]
     Active Substance: BEVACIZUMAB
     Dosage: 360 MG, CYCLE, 9TH CYCLE
     Route: 042
  19. IRINOTECAN [Suspect]
     Active Substance: IRINOTECAN
     Dosage: 320 MG, CYCLE, NINETH CYCLE
     Route: 042
  20. OXALIPLATIN. [Suspect]
     Active Substance: OXALIPLATIN
     Dosage: 120 MG, CYCLE, EIGHT CYCLE
     Route: 041
  21. FLUOROURACIL. [Suspect]
     Active Substance: FLUOROURACIL
     Indication: COLORECTAL CANCER METASTATIC
     Dosage: 4600 MG, CYCLE, FOURTH CYCLE
     Route: 041
     Dates: start: 20170116
  22. AVASTIN [Suspect]
     Active Substance: BEVACIZUMAB
     Dosage: 400 MG, CYCLE, FIRST CYCLE
     Route: 042
     Dates: start: 20170116

REACTIONS (5)
  - Epistaxis [Recovered/Resolved]
  - Decreased appetite [Recovered/Resolved]
  - Neutropenia [Recovered/Resolved]
  - Intestinal obstruction [Recovered/Resolved]
  - Asthenia [Recovered/Resolved]

NARRATIVE: CASE EVENT DATE: 20170117
